FAERS Safety Report 11254523 (Version 1)
Quarter: 2015Q3

REPORT INFORMATION
  Report Type: Spontaneous
  Country: US (occurrence: None)
  Receive Date: 20150708
  Receipt Date: 20150708
  Transmission Date: 20151125
  Serious: Yes (Other)
  Sender: FDA-Public Use
  Company Number: None

PATIENT
  Age: 89 Year
  Sex: Female
  Weight: 46.72 kg

DRUGS (1)
  1. XIFAXAN [Suspect]
     Active Substance: RIFAXIMIN
     Indication: HYPERSENSITIVITY
     Dosage: (1)  550 MG TABLET TWICE DAILY TAKEN BY MOUTH
     Route: 048
     Dates: start: 20150705, end: 20150707

REACTIONS (7)
  - Abasia [None]
  - Peripheral swelling [None]
  - Asthenia [None]
  - Lethargy [None]
  - Unresponsive to stimuli [None]
  - Bedridden [None]
  - Somnolence [None]

NARRATIVE: CASE EVENT DATE: 20150707
